FAERS Safety Report 5894885-X (Version None)
Quarter: 2008Q3

REPORT INFORMATION
  Report Type: 
  Country: None (occurrence: None)
  Receive Date: 20080924
  Receipt Date: 20080729
  Transmission Date: 20090109
  Serious: Yes (Hospitalization)
  Sender: FDA-Public Use
  Company Number: US-ASTRAZENECA-2008UW14784

PATIENT
  Sex: Female

DRUGS (2)
  1. SEROQUEL [Suspect]
     Indication: ANXIETY
     Dosage: 100 MG
     Route: 048
  2. SEROQUEL [Suspect]
     Indication: PANIC ATTACK
     Dosage: 100 MG
     Route: 048

REACTIONS (1)
  - HYPOTENSION [None]
